FAERS Safety Report 7358088-4 (Version None)
Quarter: 2011Q1

REPORT INFORMATION
  Report Type: 
  Country: None (occurrence: None)
  Receive Date: 20110307
  Receipt Date: 20100524
  Transmission Date: 20110831
  Serious: No
  Sender: FDA-Public Use
  Company Number: AEUSA201000199

PATIENT
  Age: 72 Year
  Sex: Female
  Weight: 56.6996 kg

DRUGS (2)
  1. PROLASTIN [Suspect]
     Indication: ALPHA-1 ANTI-TRYPSIN DEFICIENCY
     Dosage: 3447 MG;QW;IV
     Route: 042
     Dates: start: 19960101, end: 20100101
  2. PROLASTIN-C [Suspect]
     Indication: ALPHA-1 ANTI-TRYPSIN DEFICIENCY
     Dosage: 3447 MG;QW;IV
     Route: 042
     Dates: start: 20100101

REACTIONS (2)
  - INCORRECT DRUG ADMINISTRATION RATE [None]
  - HEAD DISCOMFORT [None]
